FAERS Safety Report 9156697 (Version 1)
Quarter: 2013Q1

REPORT INFORMATION
  Report Type: Spontaneous
  Country: FR (occurrence: None)
  Receive Date: 20130208
  Receipt Date: 20130208
  Transmission Date: 20140127
  Serious: Yes (Life-Threatening, Hospitalization)
  Sender: FDA-Public Use
  Company Number: 2013000013

PATIENT
  Age: 42 Year
  Sex: Male

DRUGS (6)
  1. ACEON [Suspect]
     Indication: HYPERTENSION
     Route: 048
     Dates: start: 20121030, end: 20121220
  2. KARDEGIC (ACETYLSALICYLATE LYSINE) [Concomitant]
  3. AMLODIPINE (AMLODIPINE) [Concomitant]
  4. FLUDEX (INDAPAMIDE) TABLET [Concomitant]
  5. SERESTA (OXAZEPAM) [Concomitant]
  6. TAHOR (ATORAVASTATIN CALCIUM) [Concomitant]

REACTIONS (2)
  - Hypoglycaemia [None]
  - Malaise [None]
